FAERS Safety Report 17730110 (Version 1)
Quarter: 2020Q2

REPORT INFORMATION
  Report Type: Spontaneous
  Country: DE (occurrence: DE)
  Receive Date: 20200430
  Receipt Date: 20200430
  Transmission Date: 20200714
  Serious: Yes (Other)
  Sender: FDA-Public Use
  Company Number: DE-TEVA-2020-DE-1229929

PATIENT
  Age: 80 Year
  Sex: Female

DRUGS (14)
  1. TILIDIN AL COMP. [Concomitant]
     Indication: PAIN MANAGEMENT
     Dosage: AS REQUIRED
     Route: 065
  2. PANTOPRAZOL BASICS 40 MG MAGENSAFTRESISTENTE TABLETTEN [Concomitant]
     Active Substance: PANTOPRAZOLE SODIUM
     Indication: PROPHYLAXIS
     Dosage: 40 MILLIGRAM DAILY; 1X1
     Route: 048
  3. DEKRISTOL 20.000 I.E. WEICHKAPSELN [Concomitant]
     Indication: OSTEOPOROSIS
     Dosage: ONCE WEEKLY
     Route: 048
     Dates: start: 20191216
  4. SPIRONOLACTON ARISTO 50 MG TABLETTEN [Concomitant]
     Indication: CARDIAC FAILURE
     Dosage: 25 MILLIGRAM DAILY;
     Route: 048
  5. BRILIQUE 90 MG FILMTABLETTEN [Concomitant]
     Indication: ANTICOAGULANT THERAPY
     Dosage: 360 MILLIGRAM DAILY; 2 TABLETS PER DAY
     Route: 048
     Dates: start: 20190508
  6. TORASEMID AL 10 MG TABLETTEN [Concomitant]
     Indication: OEDEMA
     Dosage: DOSAGE 0.5 TO 1 TABLET DAILY, DEPENDING ON THE STRENGTH OF  OEDEMA.
     Route: 048
  7. ATORVASTATIN-RATIOPHARM 40 MG FILMTABLETTEN [Concomitant]
     Active Substance: ATORVASTATIN CALCIUM
     Indication: HYPERCHOLESTEROLAEMIA
     Dosage: 40 MILLIGRAM DAILY;
     Route: 048
  8. ENTRESTO 49 MG/51 MG FILMTABLETTEN [Concomitant]
     Indication: CARDIAC FAILURE
     Dosage: 2 DOSAGE FORMS DAILY; 1 DF CONTAINS: 48,6 MG SACUBITRIL UND 51,4 MG VALSARTAN
     Route: 048
  9. ACTONEL [Suspect]
     Active Substance: RISEDRONATE SODIUM
     Indication: OSTEOPOROSIS
     Dosage: 35 MILIGRAM IN TOTAL
     Route: 048
     Dates: start: 20191222, end: 20191222
  10. ASS ABZ 100 MG TAH TABLETTEN [Concomitant]
     Indication: ANTICOAGULANT THERAPY
     Dosage: 100 MILLIGRAM DAILY; 1X1
     Route: 048
  11. METOPROLOL ABZ 50 MG TABLETTEN [Concomitant]
     Indication: HYPERTENSION
     Dosage: 0.5-1 TABLET DAILY (ACCORDING TO RR VALUE)
     Route: 048
  12. ASS ABZ 100 MG TAH TABLETTEN [Concomitant]
     Indication: ISCHAEMIC HEART DISEASE PROPHYLAXIS
  13. ENTRESTO 49 MG/51 MG FILMTABLETTEN [Concomitant]
     Indication: HYPERTENSION
  14. BRILIQUE 90 MG FILMTABLETTEN [Concomitant]
     Indication: ISCHAEMIC HEART DISEASE PROPHYLAXIS

REACTIONS (11)
  - Paraesthesia [Recovering/Resolving]
  - Muscular weakness [Recovering/Resolving]
  - Pruritus [Recovering/Resolving]
  - Renal pain [Recovering/Resolving]
  - Pain in extremity [Recovering/Resolving]
  - Vision blurred [Recovering/Resolving]
  - Anuria [Recovering/Resolving]
  - Muscle spasms [Recovering/Resolving]
  - Gait inability [Recovering/Resolving]
  - Urinary incontinence [Recovering/Resolving]
  - Hypoaesthesia [Recovering/Resolving]

NARRATIVE: CASE EVENT DATE: 20191222
